FAERS Safety Report 7489013-3 (Version None)
Quarter: 2011Q2

REPORT INFORMATION
  Report Type: 
  Country: None (occurrence: None)
  Receive Date: 20110518
  Receipt Date: 20110510
  Transmission Date: 20111010
  Serious: Yes (Life-Threatening, Hospitalization, Disabling)
  Sender: FDA-Public Use
  Company Number: JP-CELGENEUS-087-21880-11021715

PATIENT
  Sex: Male

DRUGS (20)
  1. REVLIMID [Suspect]
     Indication: MULTIPLE MYELOMA
     Dosage: 10 MILLIGRAM
     Route: 048
     Dates: start: 20101208, end: 20101221
  2. PREDNISOLONE [Concomitant]
     Dosage: 5 MILLIGRAM
     Route: 065
  3. ALLEGRA [Concomitant]
     Dosage: 2 TABLET
     Route: 065
     Dates: end: 20110415
  4. DEXAMETHASONE [Concomitant]
     Indication: REFRACTORY CANCER
     Dosage: 33 MILLIGRAM
     Route: 041
     Dates: start: 20110412, end: 20110415
  5. ALLEGRA [Concomitant]
     Dosage: 120 MILLIGRAM
     Route: 065
  6. REVLIMID [Suspect]
     Indication: REFRACTORY CANCER
     Dosage: 5 MILLIGRAM
     Route: 048
     Dates: start: 20110412, end: 20110415
  7. ALOSITOL [Concomitant]
     Dosage: 200 MILLIGRAM
     Route: 065
  8. ALOSITOL [Concomitant]
     Dosage: 300 MILLIGRAM
     Route: 065
     Dates: end: 20110415
  9. RABEPRAZOLE SODIUM [Concomitant]
     Indication: PROPHYLAXIS
     Dosage: 10 MILLIGRAM
     Route: 065
  10. METHYLCOBAL [Concomitant]
     Dosage: 1500 PICOGRAM
     Route: 065
  11. BAKTAR [Concomitant]
     Indication: PROPHYLAXIS
     Dosage: 2 TABLET
     Route: 065
  12. BAKTAR [Concomitant]
     Dosage: 1 TABLET
     Route: 065
     Dates: end: 20110415
  13. ASPIRIN [Concomitant]
     Indication: PROPHYLAXIS
     Dosage: 100 MILLIGRAM
     Route: 065
     Dates: start: 20101208
  14. DIFLUCAN [Concomitant]
     Indication: PROPHYLAXIS
     Dosage: 100 MILLIGRAM
     Route: 065
  15. BIOFERMIN [Concomitant]
     Indication: PROPHYLAXIS
     Dosage: 3 TABLET
     Route: 065
  16. BIO-THREE [Concomitant]
     Indication: PROPHYLAXIS
     Dosage: 3 GRAM
     Route: 048
     Dates: end: 20110415
  17. DEXAMETHASONE [Concomitant]
     Indication: MULTIPLE MYELOMA
     Dosage: 33 MILLIGRAM
     Route: 041
     Dates: start: 20101208, end: 20101215
  18. PREDNISOLONE [Concomitant]
     Dosage: 5 MILLIGRAM
     Route: 065
     Dates: end: 20110415
  19. ZYVOX [Concomitant]
     Route: 065
     Dates: end: 20101223
  20. FAMOTIDINE [Concomitant]
     Indication: PROPHYLAXIS
     Dosage: 40 MILLIGRAM
     Route: 048
     Dates: start: 20110120, end: 20110415

REACTIONS (7)
  - PLATELET COUNT DECREASED [None]
  - NEUTROPENIA [None]
  - NEUTROPHIL COUNT DECREASED [None]
  - THROMBOCYTOPENIA [None]
  - INFECTION [None]
  - JAUNDICE [None]
  - SEPSIS [None]
